FAERS Safety Report 9027783 (Version 1)
Quarter: 2013Q1

REPORT INFORMATION
  Report Type: Report from Study
  Country: US (occurrence: US)
  Receive Date: 20130124
  Receipt Date: 20130124
  Transmission Date: 20140127
  Serious: Yes (Other)
  Sender: FDA-Public Use
  Company Number: US-JNJFOC-20130109137

PATIENT
  Sex: Male
  Weight: 83.92 kg

DRUGS (3)
  1. REMICADE [Suspect]
     Indication: ARTHRITIS
     Route: 042
  2. METHOTREXATE [Concomitant]
     Indication: ARTHRITIS
     Dosage: DOSE 2.5 MG
     Route: 048
  3. CELEBREX [Concomitant]
     Indication: ARTHRITIS
     Dosage: DOSE 20 MG
     Route: 048

REACTIONS (4)
  - Mycobacterium tuberculosis complex test positive [Unknown]
  - Blood test abnormal [Unknown]
  - Nasopharyngitis [Not Recovered/Not Resolved]
  - Immune system disorder [Not Recovered/Not Resolved]
